FAERS Safety Report 11836079 (Version 2)
Quarter: 2015Q4

REPORT INFORMATION
  Report Type: Spontaneous
  Country: PL (occurrence: PL)
  Receive Date: 20151215
  Receipt Date: 20151222
  Transmission Date: 20160305
  Serious: Yes (Death, Hospitalization)
  Sender: FDA-Public Use
  Company Number: PHHY2015PL161791

PATIENT
  Age: 45 Year
  Sex: Female

DRUGS (2)
  1. SANDOSTATIN LAR DEPOT [Suspect]
     Active Substance: OCTREOTIDE ACETATE
     Indication: METASTASES TO LIVER
  2. SANDOSTATIN LAR DEPOT [Suspect]
     Active Substance: OCTREOTIDE ACETATE
     Indication: PANCREATIC NEUROENDOCRINE TUMOUR
     Dosage: 20 MG EVERY 4 WEEKS
     Route: 065
     Dates: start: 20051210

REACTIONS (10)
  - Myocardial infarction [Unknown]
  - Weight decreased [Unknown]
  - Abdominal pain upper [Recovering/Resolving]
  - Circulatory collapse [Fatal]
  - Hypoalbuminaemia [Unknown]
  - General physical health deterioration [Unknown]
  - Decreased appetite [Unknown]
  - Abdominal pain [Unknown]
  - Peripheral swelling [Unknown]
  - Diarrhoea [Recovering/Resolving]

NARRATIVE: CASE EVENT DATE: 201207
